FAERS Safety Report 10041782 (Version 2)
Quarter: 2014Q2

REPORT INFORMATION
  Report Type: Spontaneous
  Country: US (occurrence: US)
  Receive Date: 20140327
  Receipt Date: 20140520
  Transmission Date: 20141212
  Serious: Yes (Hospitalization)
  Sender: FDA-Public Use
  Company Number: US-JNJFOC-20140312837

PATIENT
  Age: 64 Year
  Sex: Male
  Weight: 113.4 kg

DRUGS (11)
  1. XARELTO [Suspect]
     Indication: CEREBROVASCULAR ACCIDENT PROPHYLAXIS
     Dosage: WITH FOOD
     Route: 048
  2. XARELTO [Suspect]
     Indication: CEREBROVASCULAR ACCIDENT PROPHYLAXIS
     Route: 048
  3. XARELTO [Suspect]
     Indication: ATRIAL FIBRILLATION
     Dosage: WITH FOOD
     Route: 048
  4. XARELTO [Suspect]
     Indication: ATRIAL FIBRILLATION
     Route: 048
  5. ACIPHEX [Concomitant]
     Route: 065
  6. ATORVASTATIN [Concomitant]
     Route: 065
  7. ACCUPRIL [Concomitant]
     Route: 065
  8. CARDIZEM LA [Concomitant]
     Route: 065
  9. TOPROL XL [Concomitant]
     Route: 065
  10. METFORMIN HYDROCHLORIDE [Concomitant]
     Dosage: WITH MEALS
     Route: 065
  11. MULTIVITAMINS [Concomitant]
     Dosage: WITH MEALS
     Route: 065

REACTIONS (2)
  - Deep vein thrombosis [Unknown]
  - Pulmonary embolism [Unknown]
